FAERS Safety Report 7548142-6 (Version None)
Quarter: 2011Q2

REPORT INFORMATION
  Report Type: 
  Country: None (occurrence: None)
  Receive Date: 20110615
  Receipt Date: 20110531
  Transmission Date: 20111010
  Serious: Yes (Other)
  Sender: FDA-Public Use
  Company Number: US-BAYER-2010-008692

PATIENT
  Age: 18 Year
  Sex: Female
  Weight: 126.98 kg

DRUGS (11)
  1. ENALAPRIL MALEATE [Concomitant]
     Indication: HYPERTENSION
     Dosage: 10 MG/D, UNK
     Route: 048
     Dates: start: 20080409
  2. METFORMIN HCL [Concomitant]
     Indication: POLYCYSTIC OVARIES
     Dosage: 1000 MG/D, UNK
     Route: 048
     Dates: start: 20080224, end: 20081031
  3. PERCOCET [Concomitant]
  4. MICROGESTIN FE 1.5/30 [Concomitant]
     Indication: POLYCYSTIC OVARIES
     Dosage: UNK ?G/D, UNK
     Dates: start: 20080921, end: 20091015
  5. CIPRO XR [Concomitant]
     Dosage: 500 UNK, UNK
     Route: 048
  6. YASMIN [Suspect]
     Indication: POLYCYSTIC OVARIES
     Dosage: UNK UNK, QD
     Route: 048
     Dates: start: 20080323, end: 20080419
  7. IBUPROFEN [Concomitant]
  8. YAZ [Suspect]
     Dosage: UNK
  9. CIPROFLOXACIN [Concomitant]
     Dosage: 400 MG, UNK
     Route: 048
     Dates: start: 20081111
  10. MULTIVITAMINS WITH IRON [VIT C,B12,D2,B9,FE+,B3,B6,RETINOL,B2,B1HCL,VI [Concomitant]
     Route: 048
  11. OGESTREL 0.5/50-21 [Concomitant]
     Indication: POLYCYSTIC OVARIES
     Dosage: UNK UNK, QD
     Route: 048
     Dates: start: 20091015

REACTIONS (13)
  - CHOLECYSTITIS CHRONIC [None]
  - HYPERTENSION [None]
  - ABDOMINAL PAIN [None]
  - BACK PAIN [None]
  - CHOLESTEROSIS [None]
  - PAIN [None]
  - NAUSEA [None]
  - EMOTIONAL DISTRESS [None]
  - CHOLELITHIASIS [None]
  - DIARRHOEA [None]
  - BILIARY COLIC [None]
  - GALLBLADDER DISORDER [None]
  - ANXIETY [None]
